FAERS Safety Report 16248433 (Version 1)
Quarter: 2019Q2

REPORT INFORMATION
  Report Type: Report from Study
  Country: None (occurrence: US)
  Receive Date: 20190429
  Receipt Date: 20190429
  Transmission Date: 20190711
  Serious: Yes (Hospitalization)
  Sender: FDA-Public Use
  Company Number: US-ABBVIE-19K-163-2712193-00

PATIENT
  Age: 56 Year
  Sex: Female
  Weight: 68.1 kg

DRUGS (1)
  1. HUMIRA [Suspect]
     Active Substance: ADALIMUMAB
     Indication: PSORIASIS
     Dosage: CITRATE FREE
     Route: 058
     Dates: end: 20190310

REACTIONS (5)
  - Headache [Unknown]
  - Appendicectomy [Recovering/Resolving]
  - Dyspepsia [Unknown]
  - Chest pain [Unknown]
  - Vomiting [Unknown]

NARRATIVE: CASE EVENT DATE: 20190316
